FAERS Safety Report 4920144-5 (Version None)
Quarter: 2006Q1

REPORT INFORMATION
  Report Type: 
  Country: None (occurrence: None)
  Receive Date: 20060223
  Receipt Date: 20060210
  Transmission Date: 20060701
  Serious: Yes (Other)
  Sender: FDA-Public Use
  Company Number: US-AMGEN-US168491

PATIENT
  Sex: Male

DRUGS (1)
  1. NEULASTA - PREFILLED SYRINGE [Suspect]
     Indication: DRUG USE FOR UNKNOWN INDICATION

REACTIONS (5)
  - ABSCESS [None]
  - ANASTOMOTIC COMPLICATION [None]
  - CLOSTRIDIUM COLITIS [None]
  - MEDICATION ERROR [None]
  - OBSTRUCTION [None]
